FAERS Safety Report 9404079 (Version 1)
Quarter: 2013Q3

REPORT INFORMATION
  Report Type: Spontaneous
  Country: US (occurrence: None)
  Receive Date: 20130716
  Receipt Date: 20130716
  Transmission Date: 20140515
  Serious: No
  Sender: FDA-Public Use
  Company Number: None

PATIENT
  Sex: Male
  Weight: 113.4 kg

DRUGS (7)
  1. ACETAZOLAMIDE [Suspect]
     Indication: INTRACRANIAL PRESSURE INCREASED
     Dosage: 1 TABLET
     Route: 048
     Dates: start: 20120101, end: 20130715
  2. ACETAZOLAMIDE [Suspect]
     Indication: HEAD INJURY
     Dosage: 1 TABLET
     Route: 048
     Dates: start: 20120101, end: 20130715
  3. SYNTHROID [Concomitant]
  4. LISINOPRIL [Concomitant]
  5. INDERAL [Concomitant]
  6. GEMFIBROZIL [Concomitant]
  7. NSAID [Concomitant]

REACTIONS (4)
  - Diarrhoea [None]
  - Flatulence [None]
  - Fatigue [None]
  - Somnolence [None]
